FAERS Safety Report 7494224-7 (Version None)
Quarter: 2011Q2

REPORT INFORMATION
  Report Type: 
  Country: None (occurrence: None)
  Receive Date: 20110520
  Receipt Date: 20101223
  Transmission Date: 20111010
  Serious: Yes (Hospitalization, Other)
  Sender: FDA-Public Use
  Company Number: US-BAYER-201036005NA

PATIENT
  Age: 17 Year
  Sex: Female
  Weight: 77.098 kg

DRUGS (2)
  1. YASMIN [Suspect]
     Indication: OLIGOMENORRHOEA
     Route: 048
     Dates: start: 20040301, end: 20050501
  2. YAZ [Suspect]
     Indication: OLIGOMENORRHOEA
     Dosage: UNK
     Dates: start: 20040301, end: 20050501

REACTIONS (7)
  - DEPRESSION [None]
  - PULMONARY EMBOLISM [None]
  - PAIN [None]
  - SUBCLAVIAN VEIN THROMBOSIS [None]
  - DEEP VEIN THROMBOSIS [None]
  - VENA CAVA THROMBOSIS [None]
  - THROMBOSIS [None]
